FAERS Safety Report 4740923-7 (Version None)
Quarter: 2005Q3

REPORT INFORMATION
  Report Type: 
  Country: None (occurrence: None)
  Receive Date: 20050808
  Receipt Date: 20050719
  Transmission Date: 20060218
  Serious: Yes (Hospitalization)
  Sender: FDA-Public Use
  Company Number: 2005001358

PATIENT
  Age: 57 Year
  Sex: Female
  Weight: 81.6 kg

DRUGS (2)
  1. ERLOTINIB HCL (TABLET) (ERLOTINIB HCL) [Suspect]
     Indication: OLIGODENDROGLIOMA
     Dosage: HELD DAYS 27 + 28
     Dates: start: 20050616
  2. TEMSIROLIMUS (INJECTION FOR INFUSION) [Suspect]
     Indication: OLIGODENDROGLIOMA
     Dosage: 50MG DOSE HELD 3RD WEEK DUE TO TOXICITY, 25MG ADMINISTERED THE 4TH WEEK
     Dates: start: 20050616

REACTIONS (3)
  - DEHYDRATION [None]
  - MYOCARDIAL INFARCTION [None]
  - NAUSEA [None]
